FAERS Safety Report 11561315 (Version 1)
Quarter: 2015Q3

REPORT INFORMATION
  Report Type: Spontaneous
  Country: US (occurrence: US)
  Receive Date: 20150928
  Receipt Date: 20150928
  Transmission Date: 20151125
  Serious: No
  Sender: FDA-Public Use
  Company Number: US-SHIRE-US201511937

PATIENT
  Age: 7 Year
  Sex: Female
  Weight: 23.58 kg

DRUGS (2)
  1. INTUNIV [Suspect]
     Active Substance: GUANFACINE HYDROCHLORIDE
     Indication: IMPULSIVE BEHAVIOUR
     Dosage: 1 MG, UNKNOWN
     Route: 048
     Dates: start: 201408
  2. INTUNIV [Suspect]
     Active Substance: GUANFACINE HYDROCHLORIDE
     Indication: ATTENTION DEFICIT/HYPERACTIVITY DISORDER
     Dosage: 2 MG, UNKNOWN
     Route: 048
     Dates: start: 201408, end: 201408

REACTIONS (6)
  - Sleep talking [Recovering/Resolving]
  - Sleep terror [Recovering/Resolving]
  - Sleep disorder [Recovering/Resolving]
  - Somnambulism [Recovering/Resolving]
  - Drug dose titration not performed [Recovered/Resolved]
  - Poor quality sleep [Recovering/Resolving]

NARRATIVE: CASE EVENT DATE: 201408
